FAERS Safety Report 16112823 (Version 2)
Quarter: 2019Q2

REPORT INFORMATION
  Report Type: Report from Study
  Country: TW (occurrence: TW)
  Receive Date: 20190325
  Receipt Date: 20190405
  Transmission Date: 20190711
  Serious: Yes (Hospitalization)
  Sender: FDA-Public Use
  Company Number: TW-JNJFOC-20190322937

PATIENT
  Age: 60 Year
  Sex: Male
  Weight: 62 kg

DRUGS (13)
  1. GLIMEPIRIDE. [Concomitant]
     Active Substance: GLIMEPIRIDE
     Indication: DIABETES MELLITUS
     Route: 048
     Dates: start: 20181128, end: 20190122
  2. FEBUXOSTAT. [Concomitant]
     Active Substance: FEBUXOSTAT
     Indication: GOUT
     Route: 048
  3. AMPICILLIN AND SULBACTAM [Concomitant]
     Active Substance: AMPICILLIN SODIUM\SULBACTAM SODIUM
     Route: 042
     Dates: start: 20180125, end: 20180127
  4. HYDROCORTISONE. [Concomitant]
     Active Substance: HYDROCORTISONE
     Route: 042
     Dates: start: 20180606, end: 20180606
  5. IWELL [Concomitant]
     Dates: end: 20180125
  6. HEPARIN LOCK FLUSH [Concomitant]
     Active Substance: HEPARIN SODIUM
     Route: 042
     Dates: start: 20190220, end: 20190220
  7. IBRUTINIB [Suspect]
     Active Substance: IBRUTINIB
     Indication: MANTLE CELL LYMPHOMA
     Route: 048
     Dates: start: 20171214
  8. GLIMEPIRIDE. [Concomitant]
     Active Substance: GLIMEPIRIDE
     Indication: DIABETES MELLITUS
     Route: 048
     Dates: end: 20180125
  9. GLIMEPIRIDE. [Concomitant]
     Active Substance: GLIMEPIRIDE
     Indication: DIABETES MELLITUS
     Route: 048
     Dates: start: 20190123
  10. HEPARIN LOCK FLUSH [Concomitant]
     Active Substance: HEPARIN SODIUM
     Route: 042
     Dates: start: 20181226, end: 20181226
  11. ALLOPURINOL. [Concomitant]
     Active Substance: ALLOPURINOL
     Indication: GOUT
     Route: 048
     Dates: end: 20171220
  12. ALLOPURINOL. [Concomitant]
     Active Substance: ALLOPURINOL
     Indication: GOUT
     Route: 048
     Dates: start: 20171221, end: 20180125
  13. LASIX [Concomitant]
     Active Substance: FUROSEMIDE
     Route: 042

REACTIONS (28)
  - Acute kidney injury [Recovered/Resolved]
  - Gastric ulcer [Not Recovered/Not Resolved]
  - Lymphocytosis [Unknown]
  - Constipation [Recovered/Resolved]
  - Anaemia [Recovered/Resolved]
  - Mantle cell lymphoma recurrent [Recovered/Resolved]
  - Dizziness [Recovered/Resolved]
  - Cough [Recovered/Resolved]
  - Arthralgia [Recovered/Resolved]
  - Insomnia [Not Recovered/Not Resolved]
  - Upper respiratory tract infection [Recovered/Resolved]
  - Bacteraemia [Unknown]
  - Tonsillar hypertrophy [Recovered/Resolved]
  - Anxiety disorder [Recovered/Resolved]
  - Weight increased [Not Recovered/Not Resolved]
  - Swelling face [Recovered/Resolved]
  - Leukocytosis [Unknown]
  - Upper gastrointestinal haemorrhage [Recovered/Resolved]
  - Clostridium test positive [Not Recovered/Not Resolved]
  - Colon neoplasm [Not Recovered/Not Resolved]
  - Tumour lysis syndrome [Recovered/Resolved]
  - Hepatitis C [Not Recovered/Not Resolved]
  - Osteoarthritis [Not Recovered/Not Resolved]
  - Vision blurred [Not Recovered/Not Resolved]
  - Pain in extremity [Recovered/Resolved]
  - Abdominal distension [Not Recovered/Not Resolved]
  - Gastrooesophageal reflux disease [Recovered/Resolved]
  - Essential hypertension [Not Recovered/Not Resolved]

NARRATIVE: CASE EVENT DATE: 20171221
